FAERS Safety Report 4278176-9 (Version None)
Quarter: 2004Q1

REPORT INFORMATION
  Report Type: 
  Country: None (occurrence: None)
  Receive Date: 20040120
  Receipt Date: 20040105
  Transmission Date: 20041129
  Serious: No
  Sender: FDA-Public Use
  Company Number: 203772

PATIENT
  Age: 73 Year
  Sex: Female
  Weight: 72.6 kg

DRUGS (8)
  1. HERCEPTIN [Suspect]
     Indication: BREAST CANCER METASTATIC
     Dosage: 146 MG 1/WEEK, INTRAVENOUS
     Route: 042
     Dates: start: 20030605
  2. TAXOL [Suspect]
     Indication: BREAST CANCER METASTATIC
     Dosage: 128 MG, Q3W, INTRAVENOUS
     Route: 042
     Dates: start: 20030605, end: 20031022
  3. CARBOPLATIN [Suspect]
     Indication: BREAST CANCER METASTATIC
     Dosage: 98 MG, Q3W, INTRAVENOUS
     Route: 042
     Dates: start: 20030605, end: 20031022
  4. COUMADIN [Concomitant]
  5. PREVACID [Concomitant]
  6. DECARDON (DEXAMETHASONE) [Concomitant]
  7. IRON (IRON NOS) [Concomitant]
  8. ARANESP [Concomitant]

REACTIONS (3)
  - COMPUTERISED TOMOGRAM ABDOMEN ABNORMAL [None]
  - COMPUTERISED TOMOGRAM ABNORMAL [None]
  - PULMONARY EMBOLISM [None]
